FAERS Safety Report 17529851 (Version 1)
Quarter: 2020Q1

REPORT INFORMATION
  Report Type: Report from Study
  Country: TW (occurrence: TW)
  Receive Date: 20200311
  Receipt Date: 20200311
  Transmission Date: 20200409
  Serious: Yes (Hospitalization)
  Sender: FDA-Public Use
  Company Number: TW-CELGENEUS-TWN-20200208537

PATIENT
  Age: 72 Year
  Sex: Male
  Weight: 76 kg

DRUGS (11)
  1. BROWN MIXTURE [Concomitant]
     Indication: COUGH
     Dosage: 120 ML/BOT ORAL 10 UNITS UNKNOWN
     Route: 048
     Dates: start: 20200209, end: 20200210
  2. CONCOR [Concomitant]
     Active Substance: BISOPROLOL FUMARATE
     Indication: PRODUCT USED FOR UNKNOWN INDICATION
     Route: 048
     Dates: start: 20191130
  3. METOCLOPRAMIDE. [Concomitant]
     Active Substance: METOCLOPRAMIDE
     Dosage: 6 MILLILITER
     Route: 041
     Dates: start: 20200217, end: 20200224
  4. METOCLOPRAMIDE. [Concomitant]
     Active Substance: METOCLOPRAMIDE
     Indication: ABDOMINAL DISTENSION
     Dosage: 15 MILLIGRAM
     Route: 048
     Dates: start: 20200215, end: 20200216
  5. AZACITIDINE. [Suspect]
     Active Substance: AZACITIDINE
     Indication: ACUTE MYELOID LEUKAEMIA
     Dosage: 79 MILLIGRAM/SQ. METER
     Route: 058
     Dates: start: 20191129
  6. JANUMET [Concomitant]
     Active Substance: METFORMIN HYDROCHLORIDE\SITAGLIPTIN PHOSPHATE
     Indication: PRODUCT USED FOR UNKNOWN INDICATION
     Route: 065
     Dates: start: 20111020
  7. ASP2215 [Suspect]
     Active Substance: GILTERITINIB
     Indication: ACUTE MYELOID LEUKAEMIA
     Dosage: 120 MILLIGRAM
     Route: 048
     Dates: start: 20191129
  8. MEGESTROL [Concomitant]
     Active Substance: MEGESTROL
     Indication: DECREASED APPETITE
     Dosage: 10 MILLILITER
     Route: 048
     Dates: start: 20200217
  9. CONSLIFE [Concomitant]
     Indication: CONSTIPATION
     Dosage: 20/4
     Route: 048
     Dates: start: 20200102
  10. STROCAIN [Concomitant]
     Active Substance: OXETHAZAINE
     Indication: RETINAL HAEMORRHAGE
     Dosage: 1 GTT
     Route: 047
     Dates: start: 20200217
  11. GLICLAZIDE [Concomitant]
     Active Substance: GLICLAZIDE
     Indication: PRODUCT USED FOR UNKNOWN INDICATION
     Route: 048
     Dates: start: 20191219

REACTIONS (1)
  - Fungal infection [Recovered/Resolved with Sequelae]

NARRATIVE: CASE EVENT DATE: 20200208
